FAERS Safety Report 20514944 (Version 1)
Quarter: 2022Q1

REPORT INFORMATION
  Report Type: Spontaneous
  Country: DE (occurrence: DE)
  Receive Date: 20220224
  Receipt Date: 20220224
  Transmission Date: 20220423
  Serious: Yes (Other)
  Sender: FDA-Public Use
  Company Number: DE-UCBSA-2022009593

PATIENT
  Age: 62 Year
  Sex: Female

DRUGS (3)
  1. NEUPRO [Suspect]
     Active Substance: ROTIGOTINE
     Indication: Parkinson^s disease
     Dosage: 1MG
  2. NEUPRO [Suspect]
     Active Substance: ROTIGOTINE
     Dosage: PATCH ONLY EVERY OTHER DAY
  3. NEUPRO [Suspect]
     Active Substance: ROTIGOTINE
     Dosage: EVERY DAY

REACTIONS (12)
  - Optic nerve disorder [Unknown]
  - Visual impairment [Unknown]
  - Dysphagia [Unknown]
  - Balance disorder [Unknown]
  - Speech disorder [Unknown]
  - Memory impairment [Unknown]
  - Musculoskeletal stiffness [Unknown]
  - Feeling cold [Unknown]
  - Dizziness [Unknown]
  - Agitation [Unknown]
  - Abnormal dreams [Unknown]
  - Off label use [Unknown]
